FAERS Safety Report 9532259 (Version 2)
Quarter: 2014Q1

REPORT INFORMATION
  Report Type: Spontaneous
  Country: US (occurrence: None)
  Receive Date: 20130503
  Receipt Date: 20130913
  Transmission Date: 20141002
  Serious: Yes (Other)
  Sender: FDA-Public Use
  Company Number: 1000043460

PATIENT
  Age: 85 Year
  Sex: Female

DRUGS (7)
  1. DALIRESP (ROFLUMILAST) (500 MICROGRAM, TABLETS) [Suspect]
     Indication: CHRONIC OBSTRUCTIVE PULMONARY DISEASE
     Dosage: 500 MCG (500 MCG, 1 IN 1 D)
     Dates: start: 20130110, end: 20130314
  2. PREDNISONE (PREDNISONE) [Concomitant]
  3. SPIRIVA (TIOTROPIUM BROMIDE) [Concomitant]
  4. ADVAIR DISKUS [Concomitant]
  5. PREVACID (LANSOPRAZOLE) [Concomitant]
  6. TOPROL (METOPROLOL SUCCINATE) [Concomitant]
  7. COUMADIN (WARFARIN) [Concomitant]

REACTIONS (3)
  - Suicidal ideation [None]
  - Depression [None]
  - Anxiety [None]
